FAERS Safety Report 19031317 (Version 1)
Quarter: 2021Q1

REPORT INFORMATION
  Report Type: Spontaneous
  Country: IL (occurrence: IL)
  Receive Date: 20210319
  Receipt Date: 20210319
  Transmission Date: 20210420
  Serious: Yes (Death, Other)
  Sender: FDA-Public Use
  Company Number: IL-ORGANON-O2103ISR002036

PATIENT
  Sex: Male

DRUGS (1)
  1. PROPECIA [Suspect]
     Active Substance: FINASTERIDE
     Dosage: UNK
     Route: 048

REACTIONS (3)
  - Depression [Fatal]
  - Completed suicide [Fatal]
  - Anxiety [Fatal]

NARRATIVE: CASE EVENT DATE: 2018
